FAERS Safety Report 6268321-8 (Version None)
Quarter: 2009Q3

REPORT INFORMATION
  Report Type: 
  Country: None (occurrence: None)
  Receive Date: 20090715
  Receipt Date: 20090707
  Transmission Date: 20100115
  Serious: Yes (Other)
  Sender: FDA-Public Use
  Company Number: US-JNJFOC-20090702826

PATIENT
  Sex: Female
  Weight: 60.78 kg

DRUGS (4)
  1. REMICADE [Suspect]
     Route: 042
  2. REMICADE [Suspect]
     Indication: CROHN'S DISEASE
     Route: 042
  3. COLAZAL [Concomitant]
     Indication: RESPIRATORY DISORDER
  4. FLAGYL [Concomitant]
     Indication: ANTI-INFECTIVE THERAPY

REACTIONS (1)
  - TUBERCULOSIS [None]
